FAERS Safety Report 7470950-0 (Version None)
Quarter: 2011Q2

REPORT INFORMATION
  Report Type: 
  Country: None (occurrence: None)
  Receive Date: 20110510
  Receipt Date: 20110504
  Transmission Date: 20111010
  Serious: Yes (Death)
  Sender: FDA-Public Use
  Company Number: AU-BAXTER-2011BH014886

PATIENT
  Sex: Male

DRUGS (3)
  1. DEXTROSE 10% [Suspect]
     Indication: PARENTERAL NUTRITION
     Route: 065
  2. CLINOLEIC 20% [Suspect]
     Indication: PARENTERAL NUTRITION
     Route: 065
  3. TRAVASOL 10% W/ ELECTROLYTES [Suspect]
     Indication: PARENTERAL NUTRITION
     Route: 065

REACTIONS (1)
  - DEATH [None]
